FAERS Safety Report 4424640-9 (Version None)
Quarter: 2004Q3

REPORT INFORMATION
  Report Type: 
  Country: None (occurrence: None)
  Receive Date: 20040809
  Receipt Date: 20040805
  Transmission Date: 20050211
  Serious: Yes (Other)
  Sender: FDA-Public Use
  Company Number: 2004-08-0223

PATIENT
  Age: 19 Year
  Sex: Female

DRUGS (5)
  1. NEOCLARITYN (DESLORATADINE) 'LIKE CLARINEX' [Suspect]
     Indication: SEASONAL ALLERGY
     Dosage: 5 MG QD ORAL
     Route: 048
     Dates: start: 20040423, end: 20040717
  2. CEPHALEXIN [Concomitant]
  3. FLUCLOXACILLIN [Concomitant]
  4. NORETHINDRONE ACETATE AND ETHINYL ESTRADIOL [Concomitant]
  5. TERBUTALINE [Concomitant]

REACTIONS (4)
  - COAGULOPATHY [None]
  - CONTUSION [None]
  - LIVER FUNCTION TEST ABNORMAL [None]
  - PRURITUS [None]
